FAERS Safety Report 5574683-7 (Version None)
Quarter: 2007Q4

REPORT INFORMATION
  Report Type: 
  Country: None (occurrence: None)
  Receive Date: 20071226
  Receipt Date: 20071226
  Transmission Date: 20080405
  Serious: Yes (Life-Threatening, Hospitalization)
  Sender: FDA-Public Use
  Company Number: None

PATIENT
  Age: 65 Year
  Sex: Male
  Weight: 81.6475 kg

DRUGS (2)
  1. CYMBALTA [Suspect]
     Indication: DEPRESSION
     Dosage: 60 MG 1 CAPSULE EVERY DA PO
     Route: 048
     Dates: start: 20070717, end: 20071220
  2. CYMBALTA [Suspect]
     Indication: NEUROPATHY
     Dosage: 60 MG 1 CAPSULE EVERY DA PO
     Route: 048
     Dates: start: 20070717, end: 20071220

REACTIONS (11)
  - AMNESIA [None]
  - ANXIETY [None]
  - COLD SWEAT [None]
  - FATIGUE [None]
  - FEELING OF BODY TEMPERATURE CHANGE [None]
  - INSOMNIA [None]
  - PAIN [None]
  - STOMACH DISCOMFORT [None]
  - SUICIDAL IDEATION [None]
  - TREMOR [None]
  - WITHDRAWAL SYNDROME [None]
